FAERS Safety Report 18053886 (Version 1)
Quarter: 2020Q3

REPORT INFORMATION
  Report Type: Spontaneous
  Country: US (occurrence: US)
  Receive Date: 20200721
  Receipt Date: 20200721
  Transmission Date: 20201103
  Serious: No
  Sender: FDA-Public Use
  Company Number: None

PATIENT
  Age: 63 Year
  Sex: Female
  Weight: 158.76 kg

DRUGS (1)
  1. COSENTYX [Suspect]
     Active Substance: SECUKINUMAB
     Indication: PSORIASIS
     Dosage: INJECT 300MG (2PEN)S SUBCUTANEOUSLY ONCE A WEEK FOR 5  WEEKS AS DIRECTED
     Route: 058
     Dates: start: 201911

REACTIONS (1)
  - Hypertension [None]
